FAERS Safety Report 24397569 (Version 1)
Quarter: 2024Q4

REPORT INFORMATION
  Report Type: Spontaneous
  Country: GB (occurrence: GB)
  Receive Date: 20241004
  Receipt Date: 20241004
  Transmission Date: 20250115
  Serious: Yes (Disabling, Other)
  Sender: SANDOZ
  Company Number: GB-MHRA-EMIS-719-16471f8a-5f46-46c0-b867-1dea8e032a25

PATIENT
  Age: 57 Year
  Sex: Female
  Weight: 90 kg

DRUGS (5)
  1. ANASTROZOLE [Suspect]
     Active Substance: ANASTROZOLE
     Indication: Product used for unknown indication
     Dosage: 1 DF, QD 28MG, 1MG
     Route: 065
     Dates: start: 20240806, end: 20240828
  2. BETAMETHASONE [Concomitant]
     Active Substance: BETAMETHASONE
     Indication: Lumbar spinal stenosis
     Dosage: 100 ML, APPLY THINLY ONCE A DAY FOR 1-2 WEEKS ONLY
     Route: 065
     Dates: start: 20240903
  3. CLINDAMYCIN [Concomitant]
     Active Substance: CLINDAMYCIN
     Indication: Product used for unknown indication
     Dosage: 2 DF IN 4 DAYS
     Route: 065
     Dates: start: 20240715, end: 20240813
  4. ESTRIOL [Concomitant]
     Active Substance: ESTRIOL
     Indication: Product used for unknown indication
     Dosage: INSERT ONE APPLICATORFUL DAILY FOR 2 WEEKS PRIOR TO SMEAR APPOINTMENT, IN THE EVENING BEFORE BED
     Route: 065
     Dates: start: 20240722, end: 20240903
  5. TIMOLOL [Concomitant]
     Active Substance: TIMOLOL\TIMOLOL MALEATE
     Indication: Product used for unknown indication
     Dosage: 5 ML ,ONE DROP TO BE USED TWICE A DAY IN THE AFFECTED EYE(S) AS DIRECTED BY EYE CLINIC
     Route: 065
     Dates: start: 20240916

REACTIONS (4)
  - Dry eye [Recovering/Resolving]
  - Glaucoma [Recovering/Resolving]
  - Injury corneal [Unknown]
  - Headache [Recovered/Resolved]

NARRATIVE: CASE EVENT DATE: 20240810
